FAERS Safety Report 10776706 (Version 5)
Quarter: 2015Q2

REPORT INFORMATION
  Report Type: Spontaneous
  Country: US (occurrence: US)
  Receive Date: 20150209
  Receipt Date: 20150422
  Transmission Date: 20150821
  Serious: Yes (Hospitalization, Other)
  Sender: FDA-Public Use
  Company Number: US-GLAXOSMITHKLINE-A1087223A

PATIENT
  Sex: Female

DRUGS (3)
  1. BENLYSTA [Suspect]
     Active Substance: BELIMUMAB
     Indication: SYSTEMIC LUPUS ERYTHEMATOSUS
     Dosage: 640 MG, UNK
     Route: 042
     Dates: start: 20130201
  2. BENLYSTA [Suspect]
     Active Substance: BELIMUMAB
     Dosage: 10 MGS/KGS
     Route: 042
  3. BENLYSTA [Suspect]
     Active Substance: BELIMUMAB
     Indication: ANKYLOSING SPONDYLITIS
     Dosage: UNK, U
     Dates: start: 20140819

REACTIONS (5)
  - Malaise [Unknown]
  - Gastric infection [Unknown]
  - Gastroenteritis viral [Unknown]
  - Gastrointestinal infection [Unknown]
  - Diarrhoea [Unknown]
